FAERS Safety Report 5479476-7 (Version None)
Quarter: 2007Q4

REPORT INFORMATION
  Report Type: 
  Country: None (occurrence: None)
  Receive Date: 20071008
  Receipt Date: 20070927
  Transmission Date: 20080405
  Serious: Yes (Hospitalization)
  Sender: FDA-Public Use
  Company Number: LT-ASTRAZENECA-2007SE05252

PATIENT
  Sex: Female

DRUGS (1)
  1. BETALOC ZOK [Suspect]
     Indication: HYPERTENSION
     Route: 048

REACTIONS (2)
  - ATRIOVENTRICULAR BLOCK [None]
  - OVERDOSE [None]
